FAERS Safety Report 6551190-6 (Version None)
Quarter: 2010Q1

REPORT INFORMATION
  Report Type: 
  Country: None (occurrence: None)
  Receive Date: 20100121
  Receipt Date: 20100107
  Transmission Date: 20100710
  Serious: Yes (Disabling)
  Sender: FDA-Public Use
  Company Number: 2008AL003736

PATIENT
  Age: 72 Year
  Sex: Male

DRUGS (6)
  1. DILTIAZEM HCL [Suspect]
     Dates: start: 20080220, end: 20080307
  2. LOSARTAN POTASSIUM [Concomitant]
  3. SIMVASTATIN [Concomitant]
  4. WARFARIN SODIUM [Concomitant]
  5. ASPIRIN [Concomitant]
  6. LERCANIDIPINE [Concomitant]

REACTIONS (2)
  - EYE INFLAMMATION [None]
  - RASH [None]
